FAERS Safety Report 14511222 (Version 1)
Quarter: 2018Q1

REPORT INFORMATION
  Report Type: Spontaneous
  Country: US (occurrence: US)
  Receive Date: 20180208
  Receipt Date: 20180208
  Transmission Date: 20180509
  Serious: Yes (Life-Threatening, Hospitalization)
  Sender: FDA-Public Use
  Company Number: None

PATIENT
  Age: 75 Year
  Sex: Male
  Weight: 87.2 kg

DRUGS (2)
  1. AMLODIPINE [Suspect]
     Active Substance: AMLODIPINE BESYLATE
     Route: 048
     Dates: start: 20160505, end: 20160508
  2. METOPROLOL. [Suspect]
     Active Substance: METOPROLOL
     Indication: HYPERTENSION
     Route: 048
     Dates: start: 20160507, end: 20160509

REACTIONS (6)
  - Vomiting [None]
  - Lethargy [None]
  - Nausea [None]
  - Hypotension [None]
  - Abdominal pain [None]
  - Bradycardia [None]

NARRATIVE: CASE EVENT DATE: 20160508
